FAERS Safety Report 4722633-5 (Version None)
Quarter: 2005Q3

REPORT INFORMATION
  Report Type: 
  Country: None (occurrence: None)
  Receive Date: 20050719
  Receipt Date: 20040928
  Transmission Date: 20060218
  Serious: Yes (Hospitalization)
  Sender: FDA-Public Use
  Company Number: 2004236394US

PATIENT
  Age: 56 Year
  Sex: Male
  Weight: 114.3 kg

DRUGS (8)
  1. CELEBREX [Suspect]
     Indication: ARTHRITIS
     Dosage: 200 MG, ORAL
     Route: 048
     Dates: start: 20010101, end: 20010101
  2. ASPIRIN [Concomitant]
  3. SYNTHROID [Concomitant]
  4. HUMULIN N [Concomitant]
  5. PLAVIX [Concomitant]
  6. PRINIVIL [Concomitant]
  7. TRICOR [Concomitant]
  8. ATENOLOL [Concomitant]

REACTIONS (1)
  - CHEST PAIN [None]
